FAERS Safety Report 23927667 (Version 1)
Quarter: 2024Q2

REPORT INFORMATION
  Report Type: Spontaneous
  Country: US (occurrence: US)
  Receive Date: 20240531
  Receipt Date: 20240531
  Transmission Date: 20240716
  Serious: Yes (Other)
  Sender: FDA-Public Use
  Company Number: US-BEH-2024172835

PATIENT
  Weight: 2.95 kg

DRUGS (9)
  1. HUMAN IMMUNOGLOBULIN G [Suspect]
     Active Substance: HUMAN IMMUNOGLOBULIN G
     Indication: Product used for unknown indication
     Route: 064
  2. ALBUMIN HUMAN [Suspect]
     Active Substance: ALBUMIN HUMAN
     Indication: Product used for unknown indication
     Route: 064
  3. CALCIUM GLUCONATE [Suspect]
     Active Substance: CALCIUM GLUCONATE
     Route: 064
  4. CALCIUM GLUCONATE [Suspect]
     Active Substance: CALCIUM GLUCONATE
     Route: 064
  5. IRON [Suspect]
     Active Substance: IRON
     Route: 064
  6. FOLATE SODIUM [Suspect]
     Active Substance: FOLATE SODIUM
     Route: 064
  7. METHYLCOBALAMIN [Suspect]
     Active Substance: METHYLCOBALAMIN
     Route: 064
  8. SODIUM CHLORIDE [Suspect]
     Active Substance: SODIUM CHLORIDE
     Route: 064
  9. OXYTOCIN [Suspect]
     Active Substance: OXYTOCIN
     Route: 064

REACTIONS (3)
  - Blood bilirubin increased [Unknown]
  - Bilirubin conjugated increased [Unknown]
  - Foetal exposure during pregnancy [Unknown]
